FAERS Safety Report 16784627 (Version 2)
Quarter: 2019Q4

REPORT INFORMATION
  Report Type: Spontaneous
  Country: DE (occurrence: FR)
  Receive Date: 20190909
  Receipt Date: 20191004
  Transmission Date: 20200122
  Serious: Yes (Death, Life-Threatening, Other)
  Sender: FDA-Public Use
  Company Number: FR-ASTELLAS-2019US035376

PATIENT
  Age: 61 Year
  Sex: Male

DRUGS (2)
  1. AMPHOTERICIN B, LIPOSOME [Suspect]
     Active Substance: AMPHOTERICIN B
     Indication: PRODUCT USED FOR UNKNOWN INDICATION
     Route: 065
  2. ISAVUCONAZOLE [Suspect]
     Active Substance: ISAVUCONAZOLE
     Indication: ASPERGILLUS INFECTION
     Route: 048
     Dates: start: 20171110, end: 20180301

REACTIONS (7)
  - Treatment failure [Unknown]
  - Death [Fatal]
  - Chest pain [Unknown]
  - Pyrexia [Unknown]
  - Asthenia [Unknown]
  - Graft versus host disease in gastrointestinal tract [Unknown]
  - Underdose [Unknown]

NARRATIVE: CASE EVENT DATE: 20171112
